FAERS Safety Report 18414936 (Version 3)
Quarter: 2020Q4

REPORT INFORMATION
  Report Type: Spontaneous
  Country: GB (occurrence: GB)
  Receive Date: 20201022
  Receipt Date: 20201208
  Transmission Date: 20210114
  Serious: Yes (Other)
  Sender: FDA-Public Use
  Company Number: GB-BAYER-2020-223780

PATIENT
  Age: 49 Year
  Sex: Female

DRUGS (1)
  1. MIRENA [Suspect]
     Active Substance: LEVONORGESTREL
     Indication: ENDOMETRIOSIS
     Dosage: 20 ?G PER DAY,CONTINUOUSLY
     Route: 015
     Dates: start: 2013, end: 20200227

REACTIONS (6)
  - Complication of device removal [None]
  - Device use issue [None]
  - Device use issue [None]
  - Embedded device [Recovered/Resolved]
  - Device breakage [None]
  - Off label use of device [None]

NARRATIVE: CASE EVENT DATE: 2015
